FAERS Safety Report 7553749-6 (Version None)
Quarter: 2011Q2

REPORT INFORMATION
  Report Type: 
  Country: None (occurrence: None)
  Receive Date: 20110614
  Receipt Date: 20110614
  Transmission Date: 20111010
  Serious: No
  Sender: FDA-Public Use
  Company Number: None

PATIENT
  Age: 54 Year
  Sex: Female
  Weight: 53.0709 kg

DRUGS (1)
  1. SINGULAIR [Suspect]
     Indication: POLYMORPHIC LIGHT ERUPTION
     Dosage: 10 MG ONCE PER DAY PO
     Route: 048
     Dates: start: 20110528, end: 20110606

REACTIONS (8)
  - DISEASE PROGRESSION [None]
  - DIZZINESS [None]
  - FEELING ABNORMAL [None]
  - MUSCLE SPASMS [None]
  - GLOSSODYNIA [None]
  - RASH [None]
  - EMOTIONAL DISORDER [None]
  - SWOLLEN TONGUE [None]
